FAERS Safety Report 8574938 (Version 2)
Quarter: 2012Q4

REPORT INFORMATION
  Report Type: 
  Country: US (occurrence: US)
  Receive Date: 20120523
  Receipt Date: 20120920
  Transmission Date: 20130627
  Serious: Yes (Other)
  Sender: FDA-Public Use
  Company Number: US-PFIZER INC-2012122501

PATIENT
  Age: 55 Year
  Sex: Male

DRUGS (5)
  1. CHANTIX [Suspect]
     Indication: SMOKING CESSATION THERAPY
     Dosage: UNK
     Dates: start: 20090716, end: 200908
  2. BUSPIRONE [Concomitant]
     Indication: DEPRESSION
     Dosage: UNK
     Dates: start: 1999
  3. WELLBUTRIN [Concomitant]
     Indication: SMOKING CESSATION THERAPY
     Dosage: UNK
     Dates: start: 1999, end: 201202
  4. NICOTINE [Concomitant]
     Indication: SMOKING CESSATION THERAPY
     Dosage: UNK
     Dates: start: 2008, end: 201203
  5. CLONAZEPAM [Concomitant]
     Indication: ANXIETY
     Dosage: UNK
     Dates: start: 2008

REACTIONS (6)
  - Suicide attempt [Recovered/Resolved]
  - Suicidal behaviour [Unknown]
  - Convulsion [Recovered/Resolved]
  - Depression [Not Recovered/Not Resolved]
  - Aggression [Recovered/Resolved]
  - Anxiety [Not Recovered/Not Resolved]
